FAERS Safety Report 20659621 (Version 2)
Quarter: 2024Q1

REPORT INFORMATION
  Report Type: Spontaneous
  Country: US (occurrence: US)
  Receive Date: 20220331
  Receipt Date: 20240319
  Transmission Date: 20240410
  Serious: Yes (Hospitalization, Other)
  Sender: FDA-Public Use
  Company Number: US-BRISTOL-MYERS SQUIBB COMPANY-2022-012729

PATIENT
  Age: 73 Year
  Sex: Female
  Weight: 58.96 kg

DRUGS (1)
  1. POMALIDOMIDE [Suspect]
     Active Substance: POMALIDOMIDE
     Indication: Plasma cell myeloma
     Dosage: EVERYDAY FOR 3 WEEKS ON AND 1 WEEK OFF
     Route: 048
     Dates: start: 20220118

REACTIONS (3)
  - Pneumonia [Unknown]
  - Diarrhoea [Unknown]
  - Muscle spasms [Unknown]
